FAERS Safety Report 9767546 (Version 2)
Quarter: 2013Q4

REPORT INFORMATION
  Report Type: Spontaneous
  Country: US (occurrence: US)
  Receive Date: 20131217
  Receipt Date: 20131217
  Transmission Date: 20140711
  Serious: Yes (Hospitalization)
  Sender: FDA-Public Use
  Company Number: US-GILEAD-2009-0022806

PATIENT
  Sex: Female

DRUGS (8)
  1. VIREAD [Suspect]
     Indication: HEPATITIS B
     Dates: start: 20090527, end: 20090629
  2. METOPROLOL [Concomitant]
  3. CAPTOPRIL [Concomitant]
  4. PRILOSEC [Concomitant]
  5. ZYRTEC [Concomitant]
  6. ALEVE [Concomitant]
  7. LOVASTATIN [Concomitant]
  8. ACTOS [Concomitant]

REACTIONS (1)
  - Liver function test abnormal [Recovered/Resolved]
